FAERS Safety Report 7355871-6 (Version None)
Quarter: 2011Q1

REPORT INFORMATION
  Report Type: 
  Country: None (occurrence: None)
  Receive Date: 20110311
  Receipt Date: 20110311
  Transmission Date: 20110831
  Serious: Yes (Hospitalization, Disabling, Other)
  Sender: FDA-Public Use
  Company Number: None

PATIENT
  Age: 31 Year
  Sex: Female
  Weight: 52.1637 kg

DRUGS (1)
  1. MIRENA [Suspect]
     Indication: CONTRACEPTION
     Dates: start: 20081215, end: 20081221

REACTIONS (5)
  - UTERINE HAEMORRHAGE [None]
  - PAIN [None]
  - COMPLICATION OF DEVICE INSERTION [None]
  - UTERINE PERFORATION [None]
  - DEVICE DISLOCATION [None]
